FAERS Safety Report 8418735-2 (Version None)
Quarter: 2012Q2

REPORT INFORMATION
  Report Type: 
  Country: None (occurrence: None)
  Receive Date: 20120607
  Receipt Date: 20120526
  Transmission Date: 20120825
  Serious: Yes (Hospitalization)
  Sender: FDA-Public Use
  Company Number: IT-VERTEX PHARMACEUTICALS INC.-000000000000000783

PATIENT
  Sex: Male
  Weight: 96 kg

DRUGS (6)
  1. REBETOL [Concomitant]
     Indication: HEPATITIS C
     Route: 048
     Dates: start: 20120506
  2. PEGASYS [Concomitant]
     Indication: HEPATITIS C
     Dates: start: 20120506
  3. LACIDIPINE [Concomitant]
     Indication: HYPERTENSION
     Route: 048
  4. KANRENOL [Concomitant]
     Indication: HYPERTENSION
     Route: 048
  5. TELAPREVIR [Suspect]
     Indication: HEPATITIS C
     Dosage: DOSAGE FORM: TABLET
     Route: 048
     Dates: start: 20120506
  6. REBETOL [Concomitant]
     Route: 048

REACTIONS (1)
  - CARDIAC FAILURE [None]
